FAERS Safety Report 6275814-6 (Version None)
Quarter: 2009Q3

REPORT INFORMATION
  Report Type: 
  Country: None (occurrence: None)
  Receive Date: 20090717
  Receipt Date: 20080322
  Transmission Date: 20100115
  Serious: Yes (Hospitalization, Other)
  Sender: FDA-Public Use
  Company Number: 2008AP000719

PATIENT
  Age: 15 Month
  Sex: Male

DRUGS (5)
  1. TOPIRAMATE [Suspect]
     Indication: MYOCLONIC EPILEPSY
     Dosage: 6 MG/KG;QD; 3.9 MG/KG; QD
  2. ACETAMINOPHEN [Suspect]
     Indication: PYREXIA
     Dosage: 240 MG, QID
  3. VALPROIC ACID [Suspect]
     Indication: MYOCLONIC EPILEPSY
     Dosage: 31 MG/KG;QD; 26 MG/KG; QD
  4. CARBAMAZEPINE [Concomitant]
  5. CLOBAZAM (CLOBAZAM [Concomitant]

REACTIONS (7)
  - ACTIVATED PARTIAL THROMBOPLASTIN TIME PROLONGED [None]
  - ALANINE AMINOTRANSFERASE INCREASED [None]
  - ASPARTATE AMINOTRANSFERASE INCREASED [None]
  - DRUG INTERACTION [None]
  - HEPATOTOXICITY [None]
  - INTERNATIONAL NORMALISED RATIO INCREASED [None]
  - PROTHROMBIN TIME PROLONGED [None]
